FAERS Safety Report 5590345-4 (Version None)
Quarter: 2007Q4

REPORT INFORMATION
  Report Type: 
  Country: None (occurrence: None)
  Receive Date: 20071214
  Receipt Date: 20070905
  Transmission Date: 20080405
  Serious: Yes (Other)
  Sender: FDA-Public Use
  Company Number: 2007074369

PATIENT
  Sex: Female

DRUGS (1)
  1. XANAX [Suspect]

REACTIONS (8)
  - ABDOMINAL DISTENSION [None]
  - BLOOD POTASSIUM DECREASED [None]
  - DISSOCIATION [None]
  - FEELING ABNORMAL [None]
  - FLUSHING [None]
  - HEART RATE DECREASED [None]
  - MENTAL IMPAIRMENT [None]
  - WEIGHT INCREASED [None]
